FAERS Safety Report 11892865 (Version 1)
Quarter: 2016Q1

REPORT INFORMATION
  Report Type: Spontaneous
  Country: LB (occurrence: LB)
  Receive Date: 20160106
  Receipt Date: 20160106
  Transmission Date: 20160526
  Serious: Yes (Other)
  Sender: FDA-Public Use
  Company Number: LB-NOVOPROD-471420

PATIENT
  Sex: Female

DRUGS (2)
  1. VAGIFEM [Suspect]
     Active Substance: ESTRADIOL
     Indication: ATROPHIC VULVOVAGINITIS
     Dosage: UNK, ONCE DAILY VAGINAL TABLE
     Route: 065
  2. VAGIFEM [Suspect]
     Active Substance: ESTRADIOL
     Dosage: NEXT TWO WEEKS-TWICE WEEKLY
     Route: 065

REACTIONS (2)
  - Neoplasm malignant [Unknown]
  - Vaginal haemorrhage [Unknown]
